FAERS Safety Report 20685784 (Version 3)
Quarter: 2022Q2

REPORT INFORMATION
  Report Type: Spontaneous
  Country: US (occurrence: US)
  Receive Date: 20220407
  Receipt Date: 20220426
  Transmission Date: 20220720
  Serious: Yes (Other)
  Sender: FDA-Public Use
  Company Number: US-PFIZER INC-202200317101

PATIENT
  Age: 58 Year
  Sex: Female

DRUGS (4)
  1. IBRANCE [Suspect]
     Active Substance: PALBOCICLIB
     Dosage: UNK
     Dates: start: 20220219
  2. IBRANCE [Suspect]
     Active Substance: PALBOCICLIB
     Dosage: UNK
     Dates: start: 20220313, end: 20220405
  3. IBRANCE [Suspect]
     Active Substance: PALBOCICLIB
     Dosage: UNK
     Dates: end: 20220411
  4. LETROZOLE [Concomitant]
     Active Substance: LETROZOLE
     Dosage: UNK

REACTIONS (12)
  - Pulmonary oedema [Unknown]
  - Neoplasm progression [Unknown]
  - Hepatic mass [Unknown]
  - Stomatitis [Recovered/Resolved]
  - Dry mouth [Not Recovered/Not Resolved]
  - Respiration abnormal [Unknown]
  - Dyspnoea [Unknown]
  - Nasal congestion [Unknown]
  - Fatigue [Unknown]
  - Somnolence [Unknown]
  - Cough [Recovering/Resolving]
  - Dyspnoea exertional [Recovering/Resolving]

NARRATIVE: CASE EVENT DATE: 20220101
